FAERS Safety Report 9947066 (Version 1)
Quarter: 2014Q1

REPORT INFORMATION
  Report Type: Report from Study
  Country: US (occurrence: US)
  Receive Date: 20140303
  Receipt Date: 20140303
  Transmission Date: 20141002
  Serious: Yes (Other)
  Sender: FDA-Public Use
  Company Number: US-ABBVIE-13P-163-1064036-00

PATIENT
  Sex: Male
  Weight: 69.01 kg

DRUGS (11)
  1. HUMIRA [Suspect]
     Indication: RHEUMATOID ARTHRITIS
     Dates: end: 201301
  2. HUMIRA [Suspect]
     Dates: start: 201302, end: 201302
  3. METHOTREXATE [Concomitant]
     Indication: RHEUMATOID ARTHRITIS
  4. FOLIC ACID [Concomitant]
     Indication: VITAMIN SUPPLEMENTATION
  5. GABAPENTIN [Concomitant]
     Indication: RESTLESS LEGS SYNDROME
  6. GABAPENTIN [Concomitant]
     Indication: PAIN IN EXTREMITY
  7. GABAPENTIN [Concomitant]
     Indication: INSOMNIA
  8. TRAMADOL [Concomitant]
     Indication: MUSCULOSKELETAL PAIN
  9. TRAMADOL [Concomitant]
     Indication: BACK PAIN
  10. CYMBALTA [Concomitant]
     Indication: PAIN
  11. SKELAXIN [Concomitant]
     Indication: MYALGIA

REACTIONS (4)
  - Tooth abscess [Recovered/Resolved]
  - Pain [Not Recovered/Not Resolved]
  - Joint stiffness [Not Recovered/Not Resolved]
  - Muscular weakness [Not Recovered/Not Resolved]
